FAERS Safety Report 9664065 (Version 1)
Quarter: 2013Q4

REPORT INFORMATION
  Report Type: Spontaneous
  Country: BR (occurrence: BR)
  Receive Date: 20131101
  Receipt Date: 20131101
  Transmission Date: 20140711
  Serious: Yes (Other)
  Sender: FDA-Public Use
  Company Number: BR-PFIZER INC-2013308346

PATIENT
  Age: 74 Year
  Sex: Female

DRUGS (1)
  1. DETRUSITOL LA [Suspect]
     Indication: URINARY INCONTINENCE
     Dosage: 4 MG (ONE CAPSULE), DAILY
     Route: 048
     Dates: start: 2009

REACTIONS (1)
  - Genital disorder female [Unknown]
